FAERS Safety Report 4985987-0 (Version None)
Quarter: 2006Q2

REPORT INFORMATION
  Report Type: 
  Country: None (occurrence: None)
  Receive Date: 20060421
  Receipt Date: 20060405
  Transmission Date: 20061013
  Serious: Yes (Hospitalization)
  Sender: FDA-Public Use
  Company Number: 223036

PATIENT
  Age: 53 Year
  Sex: Female
  Weight: 44.5 kg

DRUGS (7)
  1. HERCEPTIN        (TRASTUZUMAB) PWDR + SOLVENT [Suspect]
     Indication: BREAST CANCER
     Dosage: SEE IMAGE
     Route: 042
     Dates: start: 20051013
  2. HERCEPTIN        (TRASTUZUMAB) PWDR + SOLVENT [Suspect]
     Indication: BREAST CANCER
     Dosage: SEE IMAGE
     Route: 042
     Dates: start: 20051013
  3. HERCEPTIN (TRASTUZUMAB) PWDR + SOLVENT [Suspect]
  4. HERCEPTIN (TRASTUZUMAB) PWDR + SOLVENT, [Suspect]
  5. RIBOFLAVIN TAB [Concomitant]
  6. ETIZOLAM [Concomitant]
  7. BEPOTASTINE BESILATE [Concomitant]

REACTIONS (1)
  - ENDOMETRIAL CANCER [None]
